FAERS Safety Report 17820672 (Version 3)
Quarter: 2020Q2

REPORT INFORMATION
  Report Type: Spontaneous
  Country: FR (occurrence: FR)
  Receive Date: 20200525
  Receipt Date: 20200610
  Transmission Date: 20200714
  Serious: Yes (Hospitalization)
  Sender: FDA-Public Use
  Company Number: FR-ALLERGAN-2020772US

PATIENT
  Sex: Female

DRUGS (7)
  1. MORPHINE [Suspect]
     Active Substance: MORPHINE
     Indication: BACK PAIN
     Dosage: 10 MG
  2. VALSARTAN/HYDROCHLOROTHIAZIDE [Concomitant]
     Active Substance: HYDROCHLOROTHIAZIDE\VALSARTAN
     Indication: HYPERTENSION
  3. MORPHINE SULFATE UNK [Suspect]
     Active Substance: MORPHINE SULFATE
     Indication: BACK PAIN
     Dosage: 30 MG
  4. METFORMIN [Suspect]
     Active Substance: METFORMIN HYDROCHLORIDE
     Indication: TYPE 2 DIABETES MELLITUS
  5. RILMENIDINE [Concomitant]
     Active Substance: RILMENIDINE
     Indication: HYPERTENSION
  6. MELOXICAM. [Concomitant]
     Active Substance: MELOXICAM
     Indication: BACK PAIN
  7. DICLOFENAC [Concomitant]
     Active Substance: DICLOFENAC
     Indication: BACK PAIN
     Route: 061

REACTIONS (4)
  - Acute kidney injury [Recovering/Resolving]
  - Respiratory failure [Unknown]
  - Overdose [Unknown]
  - Lactic acidosis [Unknown]
